FAERS Safety Report 7939712-1 (Version None)
Quarter: 2011Q4

REPORT INFORMATION
  Report Type: 
  Country: None (occurrence: None)
  Receive Date: 20111125
  Receipt Date: 20111117
  Transmission Date: 20120403
  Serious: Yes (Life-Threatening, Disabling, Other)
  Sender: FDA-Public Use
  Company Number: PHHO2007JP00590

PATIENT
  Sex: Male
  Weight: 64 kg

DRUGS (3)
  1. ALISKIREN [Suspect]
     Dosage: 300 MG, QD
     Route: 048
     Dates: start: 20061226, end: 20070103
  2. ALISKIREN [Suspect]
     Dosage: 150 MG, QD
     Route: 048
     Dates: start: 20061212, end: 20061225
  3. ALISKIREN [Suspect]
     Indication: ESSENTIAL HYPERTENSION
     Dosage: 75 MG, QD
     Route: 048
     Dates: start: 20061128, end: 20061211

REACTIONS (5)
  - THROMBOTIC STROKE [None]
  - POLLAKIURIA [None]
  - THALAMIC INFARCTION [None]
  - LACUNAR INFARCTION [None]
  - HEMIPARESIS [None]
